FAERS Safety Report 8765212 (Version 2)
Quarter: 2012Q4

REPORT INFORMATION
  Report Type: 
  Country: US (occurrence: US)
  Receive Date: 20120903
  Receipt Date: 20121017
  Transmission Date: 20130627
  Serious: No
  Sender: FDA-Public Use
  Company Number: US-PFIZER INC-2012215251

PATIENT
  Age: 53 Year
  Sex: Female
  Weight: 86.2 kg

DRUGS (4)
  1. GEODON [Suspect]
     Indication: FEELING OF RELAXATION
     Dosage: 60 mg, 2x/day
     Route: 048
     Dates: start: 201111, end: 201206
  2. GEODON [Suspect]
     Indication: DEPRESSION
  3. GEODON [Suspect]
     Indication: ANXIETY
  4. CITALOPRAM [Concomitant]
     Indication: DEPRESSION
     Dosage: 40 mg, 1x/day
     Route: 048

REACTIONS (1)
  - Malaise [Not Recovered/Not Resolved]
